FAERS Safety Report 4618401-5 (Version None)
Quarter: 2005Q1

REPORT INFORMATION
  Report Type: 
  Country: None (occurrence: None)
  Receive Date: 20050323
  Receipt Date: 20050309
  Transmission Date: 20050727
  Serious: Yes (Hospitalization, Disabling)
  Sender: FDA-Public Use
  Company Number: EWC050142429

PATIENT
  Age: 47 Year
  Sex: Female
  Weight: 50 kg

DRUGS (5)
  1. ALIMTA [Suspect]
     Indication: LUNG NEOPLASM MALIGNANT
     Dosage: 790 MG/Q3W
     Dates: start: 20041206
  2. CISPLATIN [Suspect]
     Indication: LUNG NEOPLASM MALIGNANT
     Dosage: 120 MG/Q3W
     Dates: start: 20041206
  3. FOLIC ACID [Concomitant]
  4. VITAMIN B-12 [Concomitant]
  5. LEVOTHYROXINE [Concomitant]

REACTIONS (4)
  - EXTREMITY NECROSIS [None]
  - PERIPHERAL ISCHAEMIA [None]
  - RAYNAUD'S PHENOMENON [None]
  - SUBCLAVIAN ARTERY STENOSIS [None]
